FAERS Safety Report 14834122 (Version 1)
Quarter: 2018Q2

REPORT INFORMATION
  Report Type: Spontaneous
  Country: US (occurrence: US)
  Receive Date: 20180501
  Receipt Date: 20180501
  Transmission Date: 20180711
  Serious: No
  Sender: FDA-Public Use
  Company Number: US-ROCHE-1942606

PATIENT
  Sex: Female
  Weight: 61.29 kg

DRUGS (2)
  1. XELODA [Suspect]
     Active Substance: CAPECITABINE
     Indication: COLON CANCER STAGE IV
     Dosage: 1 PILL
     Route: 048
     Dates: start: 2015
  2. AVASTIN [Suspect]
     Active Substance: BEVACIZUMAB
     Indication: COLON CANCER STAGE IV
     Route: 041
     Dates: start: 2015

REACTIONS (2)
  - Impaired work ability [Unknown]
  - Disability [Unknown]
